FAERS Safety Report 21004159 (Version 2)
Quarter: 2022Q3

REPORT INFORMATION
  Report Type: Spontaneous
  Country: US (occurrence: US)
  Receive Date: 20220624
  Receipt Date: 20220928
  Transmission Date: 20221026
  Serious: No
  Sender: FDA-Public Use
  Company Number: US-AVEO ONCOLOGY-2022-AVEO-US000088

PATIENT

DRUGS (22)
  1. FOTIVDA [Suspect]
     Active Substance: TIVOZANIB HYDROCHLORIDE
     Indication: Renal cell carcinoma
     Dosage: 0.89 MG, DAILY FOR 21 DAYS WITH 7 DAYS OFF (28-DAY CYCLE)
     Route: 048
     Dates: start: 20220314, end: 2022
  2. DEXAMETHASONE [Concomitant]
     Active Substance: DEXAMETHASONE
  3. EPIPEN [Concomitant]
     Active Substance: EPINEPHRINE
  4. FERROUS SULFATE [Concomitant]
     Active Substance: FERROUS SULFATE
  5. FOLIC ACID [Concomitant]
     Active Substance: FOLIC ACID
  6. ALBUTEROL\IPRATROPIUM [Concomitant]
     Active Substance: ALBUTEROL\IPRATROPIUM
  7. LEVOTHYROXINE [Concomitant]
     Active Substance: LEVOTHYROXINE
  8. LOMOTIL [Concomitant]
     Active Substance: ATROPINE SULFATE\DIPHENOXYLATE HYDROCHLORIDE
  9. METOPROLOL SUCCINATE [Concomitant]
     Active Substance: METOPROLOL SUCCINATE
  10. MORPHINE SULFATE [Concomitant]
     Active Substance: MORPHINE SULFATE
  11. OMEPRAZOLE [Concomitant]
     Active Substance: OMEPRAZOLE
  12. PERCOCET [Concomitant]
     Active Substance: ACETAMINOPHEN\OXYCODONE HYDROCHLORIDE
  13. PROAIR HFA [Concomitant]
     Active Substance: ALBUTEROL SULFATE
  14. PROCHLORPERAZINE [Concomitant]
     Active Substance: PROCHLORPERAZINE
  15. VITAMIN C [Concomitant]
     Active Substance: ASCORBIC ACID
  16. ALBUTEROL [Concomitant]
     Active Substance: ALBUTEROL
  17. DOCUSATE CALCIUM [Concomitant]
     Active Substance: DOCUSATE CALCIUM
  18. EPINEPHRINE [Concomitant]
     Active Substance: EPINEPHRINE
  19. LIDOCAINE [Concomitant]
     Active Substance: LIDOCAINE
  20. ONDANSETRON [Concomitant]
     Active Substance: ONDANSETRON
  21. SENNA PLUS [Concomitant]
     Active Substance: DOCUSATE SODIUM\SENNOSIDES\SENNOSIDES A AND B
  22. NYSTATIN [Concomitant]
     Active Substance: NYSTATIN

REACTIONS (11)
  - Abdominal discomfort [Recovered/Resolved]
  - Fatigue [Unknown]
  - Stomatitis [Recovered/Resolved]
  - Hypertension [Unknown]
  - Thyroiditis [Not Recovered/Not Resolved]
  - Headache [Unknown]
  - Blood glucose increased [Unknown]
  - Face oedema [Recovered/Resolved]
  - Oedema peripheral [Recovered/Resolved]
  - Dry skin [Not Recovered/Not Resolved]
  - Neoplasm [Unknown]
